FAERS Safety Report 8578976-0 (Version None)
Quarter: 2012Q3

REPORT INFORMATION
  Report Type: 
  Country: None (occurrence: None)
  Receive Date: 20120808
  Receipt Date: 20120806
  Transmission Date: 20120928
  Serious: Yes (Death, Other)
  Sender: FDA-Public Use
  Company Number: BR-PFIZER INC-2012191713

PATIENT
  Age: 82 Year
  Sex: Female

DRUGS (1)
  1. ALPRAZOLAM [Suspect]
     Dosage: UNSPECIFIED DOSAGE, ONCE A DAY
     Route: 048
     Dates: start: 20120323

REACTIONS (3)
  - ARRHYTHMIA [None]
  - HEPATIC NEOPLASM [None]
  - CARDIO-RESPIRATORY ARREST [None]
